FAERS Safety Report 8815869 (Version 1)
Quarter: 2012Q4

REPORT INFORMATION
  Report Type: 
  Country: US (occurrence: US)
  Receive Date: 20120928
  Receipt Date: 20120928
  Transmission Date: 20130627
  Serious: Yes (Hospitalization)
  Sender: FDA-Public Use
  Company Number: US-ALLERGAN-1213236US

PATIENT
  Age: 37 Year
  Sex: Female

DRUGS (1)
  1. BOTOX� [Suspect]
     Indication: LEG SPASTICITY
     Dosage: 300 UNITS, single
     Route: 030
     Dates: start: 20120924, end: 20120924

REACTIONS (9)
  - Throat tightness [Unknown]
  - Loss of consciousness [Recovered/Resolved]
  - Feeling abnormal [Unknown]
  - Hypoaesthesia [Unknown]
  - Dysarthria [Unknown]
  - Dyspnoea [Unknown]
  - Injection site pain [Unknown]
  - Muscle spasms [Unknown]
  - Off label use [Unknown]
